FAERS Safety Report 6622045-3 (Version None)
Quarter: 2010Q1

REPORT INFORMATION
  Report Type: 
  Country: None (occurrence: None)
  Receive Date: 20100223
  Receipt Date: 20100106
  Transmission Date: 20100710
  Serious: No
  Sender: FDA-Public Use
  Company Number: 8054990

PATIENT
  Sex: Female
  Weight: 63.5 kg

DRUGS (3)
  1. CERTOLIZUMAB PEGOL [Suspect]
     Indication: CROHN'S DISEASE
     Dosage: 400 MG MONTHLY SUBCUTANEOUS
     Route: 058
     Dates: start: 20090801
  2. LISINOPRIL [Concomitant]
  3. LAC-HYDRIN [Concomitant]

REACTIONS (6)
  - CHEST PAIN [None]
  - FATIGUE [None]
  - HEADACHE [None]
  - MYALGIA [None]
  - OEDEMA [None]
  - PAIN IN EXTREMITY [None]
